FAERS Safety Report 5092875-0 (Version None)
Quarter: 2006Q3

REPORT INFORMATION
  Report Type: 
  Country: None (occurrence: None)
  Receive Date: 20060727
  Receipt Date: 20060622
  Transmission Date: 20061208
  Serious: Yes (Other)
  Sender: FDA-Public Use
  Company Number: 2006079908

PATIENT
  Age: 21 Year
  Sex: Female

DRUGS (5)
  1. LYRICA [Suspect]
     Indication: DIABETIC NEUROPATHY
     Dosage: 300 MG (150 MG,2 IN 1 D)
     Dates: start: 20060419
  2. HYDROCHLOROTHIAZIDE/TRIAMTERENE (HYDROCHLOROTHIAZIDE, TRIAMTERENE) [Concomitant]
  3. LANTUS [Concomitant]
  4. LIDODERM (LIDODERM) [Concomitant]
  5. MEDROXYPROGESTERONE [Concomitant]

REACTIONS (1)
  - VITREOUS HAEMORRHAGE [None]
